FAERS Safety Report 5838508-4 (Version None)
Quarter: 2008Q3

REPORT INFORMATION
  Report Type: 
  Country: None (occurrence: None)
  Receive Date: 20080808
  Receipt Date: 20080730
  Transmission Date: 20090109
  Serious: Yes (Other)
  Sender: FDA-Public Use
  Company Number: CA-JNJFOC-20080703513

PATIENT
  Sex: Male
  Weight: 115 kg

DRUGS (2)
  1. REMICADE [Suspect]
     Route: 042
  2. REMICADE [Suspect]
     Indication: ANKYLOSING SPONDYLITIS
     Dosage: TOTAL OF 16 INFUSIONS
     Route: 042

REACTIONS (6)
  - CROHN'S DISEASE [None]
  - GLAUCOMA [None]
  - MIGRAINE [None]
  - NAUSEA [None]
  - ULCER [None]
  - VOMITING [None]
